FAERS Safety Report 8463197-2 (Version None)
Quarter: 2012Q2

REPORT INFORMATION
  Report Type: 
  Country: None (occurrence: None)
  Receive Date: 20120323
  Receipt Date: 20111117
  Transmission Date: 20120825
  Serious: Yes (Disabling)
  Sender: FDA-Public Use
  Company Number: 163-21880-11092843

PATIENT
  Age: 47 Year
  Sex: Male

DRUGS (6)
  1. LORTAB [Concomitant]
  2. GABAPENTIN [Concomitant]
  3. ASPIRIN TAB [Concomitant]
  4. RESTORIL [Concomitant]
  5. REVLIMID [Suspect]
     Indication: MULTIPLE MYELOMA
     Dosage: 10 MG, 1 IN 1 D, PO; 10 MG, 1 IN 1 D, PO
     Route: 048
     Dates: start: 20110621, end: 20110628
  6. REVLIMID [Suspect]
     Indication: MULTIPLE MYELOMA
     Dosage: 10 MG, 1 IN 1 D, PO; 10 MG, 1 IN 1 D, PO
     Route: 048
     Dates: start: 20110427

REACTIONS (1)
  - NEUROPATHY PERIPHERAL [None]
